FAERS Safety Report 7494478 (Version 4)
Quarter: 2013Q3

REPORT INFORMATION
  Report Type: Report from Study
  Country: US (occurrence: US)
  Receive Date: 20100722
  Receipt Date: 20130709
  Transmission Date: 20140515
  Serious: Yes (Other)
  Sender: FDA-Public Use
  Company Number: US-TEVA-241660USA

PATIENT
  Age: 21 Year
  Sex: Female

DRUGS (1)
  1. CLARAVIS CAPSULE, ISOTRETINOIN, 20MG, 30MG, 40MG [Suspect]
     Dosage: 80 MILLIGRAM DAILY;
     Route: 048
     Dates: start: 20100211

REACTIONS (2)
  - Unintended pregnancy [Recovered/Resolved]
  - Treatment noncompliance [None]
